FAERS Safety Report 13195794 (Version 1)
Quarter: 2017Q1

REPORT INFORMATION
  Report Type: Spontaneous
  Country: GB (occurrence: GB)
  Receive Date: 20170208
  Receipt Date: 20170208
  Transmission Date: 20170428
  Serious: Yes (Other)
  Sender: FDA-Public Use
  Company Number: GB-ACCORD-047966

PATIENT
  Age: 14 Year

DRUGS (10)
  1. IFOSFAMIDE. [Suspect]
     Active Substance: IFOSFAMIDE
     Indication: HODGKIN^S DISEASE
     Dosage: RECEIVED SIX ROUNDS OF CHEMOTHERAPY AND TWO WEEKS
  2. CARMUSTINE [Suspect]
     Active Substance: CARMUSTINE
     Indication: HODGKIN^S DISEASE
     Dosage: RECEIVED SIX ROUNDS OF CHEMOTHERAPY AND TWO WEEKS OF RADIOTHERAPY
  3. ETOPOSIDE. [Suspect]
     Active Substance: ETOPOSIDE
     Indication: HODGKIN^S DISEASE
     Dosage: RECEIVED SIX ROUNDS OF CHEMOTHERAPY AND TWO WEEKS OF RADIOTHERAPY
  4. DOXORUBICIN [Suspect]
     Active Substance: DOXORUBICIN
     Indication: HODGKIN^S DISEASE
     Dosage: RECEIVED SIX ROUNDS OF CHEMOTHERAPY AND TWO WEEKS OF RADIOTHERAPY
  5. VINBLASTINE [Suspect]
     Active Substance: VINBLASTINE
     Indication: HODGKIN^S DISEASE
     Dosage: RECEIVED SIX ROUNDS OF CHEMOTHERAPY AND TWO WEEKS OF RADIOTHERAPY
  6. CYTARABINE/CYTARABINE HYDROCHLORIDE/CYTARABINE OCFOSFATE [Suspect]
     Active Substance: CYTARABINE
     Indication: HODGKIN^S DISEASE
     Dosage: RECEIVED SIX ROUNDS OF CHEMOTHERAPY AND TWO WEEKS OF RADIOTHERAPY
  7. PREDNISONE. [Suspect]
     Active Substance: PREDNISONE
     Indication: HODGKIN^S DISEASE
     Dosage: RECEIVED SIX ROUNDS OF CHEMOTHERAPY AND TWO WEEKS OF RADIOTHERAPY
  8. BLEOMYCIN [Suspect]
     Active Substance: BLEOMYCIN SULFATE
     Indication: HODGKIN^S DISEASE
     Dosage: RECEIVED SIX ROUNDS OF CHEMOTHERAPY AND TWO WEEKS OF RADIOTHERAPY
  9. DACARBAZINE. [Suspect]
     Active Substance: DACARBAZINE
     Indication: HODGKIN^S DISEASE
     Dosage: RECEIVED SIX ROUNDS OF CHEMOTHERAPY AND TWO WEEKS OF RADIOTHERAPY
  10. MELPHALAN [Suspect]
     Active Substance: MELPHALAN
     Indication: HODGKIN^S DISEASE
     Dosage: RECEIVED SIX ROUNDS OF CHEMOTHERAPY AND TWO WEEKS OF RADIOTHERAPY

REACTIONS (8)
  - Depression [Unknown]
  - Osteoporosis [Unknown]
  - Off label use [Unknown]
  - Anxiety [Unknown]
  - Disturbance in attention [Unknown]
  - Fatigue [Unknown]
  - Emotional disorder [Unknown]
  - Infertility [Unknown]
